FAERS Safety Report 13273868 (Version 2)
Quarter: 2017Q1

REPORT INFORMATION
  Report Type: Spontaneous
  Country: US (occurrence: US)
  Receive Date: 20170227
  Receipt Date: 20170309
  Transmission Date: 20170428
  Serious: Yes (Other)
  Sender: FDA-Public Use
  Company Number: US-BAYER-2017-038031

PATIENT
  Age: 18 Year
  Sex: Female

DRUGS (1)
  1. MIRENA [Suspect]
     Active Substance: LEVONORGESTREL
     Dosage: 20 MCG/24HR, CONT
     Route: 015
     Dates: start: 20150513, end: 20170201

REACTIONS (3)
  - Ectopic pregnancy with contraceptive device [None]
  - Abdominal pain lower [None]
  - Drug ineffective [None]

NARRATIVE: CASE EVENT DATE: 20160731
